FAERS Safety Report 9804605 (Version 4)
Quarter: 2014Q1

REPORT INFORMATION
  Report Type: Report from Study
  Country: US (occurrence: US)
  Receive Date: 20140108
  Receipt Date: 20140131
  Transmission Date: 20141002
  Serious: Yes (Hospitalization)
  Sender: FDA-Public Use
  Company Number: US-PFIZER INC-2014001083

PATIENT
  Sex: Male

DRUGS (17)
  1. SUNITINIB MALATE [Suspect]
     Dosage: 25 MG, DAILY
     Route: 048
     Dates: start: 20130927, end: 20131118
  2. EFEXOR [Concomitant]
     Dosage: 150 MG, DAILY
  3. LIPITOR [Concomitant]
     Dosage: 40 MG, DAILY
  4. NIFEDIPINE [Concomitant]
     Dosage: NIFEDIPINE ER, 60 MG, DAILY
  5. ASPIRIN [Concomitant]
     Dosage: 81 MG, DAILY, BY MOUTH
     Route: 048
  6. VITAMIN B COMPLEX [Concomitant]
     Dosage: 1 DF(TAB), DAILY
  7. BENICAR [Concomitant]
     Dosage: 40 MG, 2X/DAY
  8. CARVEDILOL [Concomitant]
     Dosage: 12.5 MG, 2X/DAY
  9. FISH OIL [Concomitant]
     Dosage: 2000 MG, DAILY
  10. LUPRON [Concomitant]
     Dosage: 22.5 MG, EVERY 3 MONTHS
     Route: 030
  11. PLAVIX [Concomitant]
     Dosage: 75 MG, DAILY
  12. PROVIGIL [Concomitant]
     Dosage: 100 MG, DAILY
  13. VITAMIN C [Concomitant]
     Dosage: 500 MG, DAILY
  14. PREDNISONE [Concomitant]
     Dosage: 5 MG, 2X/DAY
  15. VITAMIN D [Concomitant]
     Dosage: 400 IU, UNK
  16. DASATINIB [Concomitant]
     Dosage: 100 MG, DAILY
     Route: 048
     Dates: start: 20130212, end: 20130827
  17. ABIRATERONE ACETATE [Concomitant]
     Dosage: 1000 MG, DAILY
     Route: 048
     Dates: start: 20120208, end: 20131118

REACTIONS (1)
  - Vomiting [Unknown]
